FAERS Safety Report 5849165-5 (Version None)
Quarter: 2008Q3

REPORT INFORMATION
  Report Type: 
  Country: None (occurrence: None)
  Receive Date: 20080815
  Receipt Date: 20080804
  Transmission Date: 20090109
  Serious: Yes (Hospitalization)
  Sender: FDA-Public Use
  Company Number: 237143J08USA

PATIENT
  Age: 35 Year
  Sex: Female

DRUGS (6)
  1. REBIF [Suspect]
     Indication: MULTIPLE SCLEROSIS
     Dosage: 22 MCG, 3 IN 1 WEEKS, SUBCUTANEOUS
     Route: 058
     Dates: start: 20071107
  2. SYNTHROID [Concomitant]
  3. SOTALOL (SOTALOL /00371501/) [Concomitant]
  4. LEXAPRO [Concomitant]
  5. LASIX (FUROSEMIDE /00032601/) [Concomitant]
  6. POTASSIUM CHLORIDE [Concomitant]

REACTIONS (3)
  - BLINDNESS UNILATERAL [None]
  - BLOOD PRESSURE INCREASED [None]
  - OPTIC NEURITIS [None]
